FAERS Safety Report 9840936 (Version 4)
Quarter: 2014Q2

REPORT INFORMATION
  Report Type: Spontaneous
  Country: IT (occurrence: IT)
  Receive Date: 20140124
  Receipt Date: 20140625
  Transmission Date: 20141212
  Serious: Yes (Hospitalization)
  Sender: FDA-Public Use
  Company Number: IT-009507513-1401ITA009781

PATIENT
  Age: 59 Year
  Sex: Male
  Weight: 89 kg

DRUGS (10)
  1. VICTRELIS [Suspect]
     Indication: CHRONIC HEPATITIS C
     Dosage: 2400MG DAILY
     Route: 048
     Dates: start: 20140109, end: 20140115
  2. REBETOL [Suspect]
     Indication: CHRONIC HEPATITIS C
     Dosage: 1400MG DAILY
     Route: 048
     Dates: start: 20131211, end: 20140115
  3. PEGINTRON [Suspect]
     Indication: CHRONIC HEPATITIS C
     Dosage: 150 MICROGRAM, WEEKLY
     Route: 058
     Dates: start: 20131211, end: 20140115
  4. ESOMEPRAZOLE MAGNESIUM [Concomitant]
  5. FOLIC ACID [Concomitant]
  6. VALSARTAN [Concomitant]
  7. SEREUPIN [Concomitant]
  8. EUTIROX [Concomitant]
  9. LEVOBREN [Concomitant]
  10. BENEXOL (CYANOCOBALAMIN (+) PYRIDOXINE HYDROCHLORIDE (+) THIAMINE HYDR [Concomitant]

REACTIONS (6)
  - Renal failure acute [Recovering/Resolving]
  - Cardiac failure [Recovering/Resolving]
  - Infection [Recovering/Resolving]
  - Pyrexia [Recovering/Resolving]
  - Dyspnoea [Recovering/Resolving]
  - Diarrhoea [Recovering/Resolving]
